FAERS Safety Report 11297459 (Version 1)
Quarter: 2015Q3

REPORT INFORMATION
  Report Type: Spontaneous
  Country: US (occurrence: US)
  Receive Date: 20150722
  Receipt Date: 20150722
  Transmission Date: 20151125
  Serious: No
  Sender: FDA-Public Use
  Company Number: US-ELI_LILLY_AND_COMPANY-US200806000641

PATIENT
  Sex: Male

DRUGS (2)
  1. HUMATROPE [Suspect]
     Active Substance: SOMATROPIN
     Indication: GROWTH HORMONE DEFICIENCY
     Dates: start: 20080510
  2. ALAVERT ALLERGY [Concomitant]
     Active Substance: LORATADINE

REACTIONS (5)
  - Oropharyngeal pain [Unknown]
  - Pain in extremity [Unknown]
  - Ear pain [Unknown]
  - Cough [Unknown]
  - Abdominal pain upper [Unknown]

NARRATIVE: CASE EVENT DATE: 20080521
